FAERS Safety Report 21631334 (Version 4)
Quarter: 2023Q2

REPORT INFORMATION
  Report Type: Spontaneous
  Country: US (occurrence: US)
  Receive Date: 20221123
  Receipt Date: 20230516
  Transmission Date: 20230721
  Serious: No
  Sender: FDA-Public Use
  Company Number: US-SA-2022SA475218

PATIENT
  Age: 67 Year
  Sex: Female

DRUGS (2)
  1. DUPIXENT [Suspect]
     Active Substance: DUPILUMAB
     Indication: Eczema
     Dosage: 300 MG, OTHER
     Route: 058
  2. DUPIXENT [Suspect]
     Active Substance: DUPILUMAB
     Dosage: 300 MG, OTHER
     Route: 058
     Dates: start: 20221204

REACTIONS (8)
  - COVID-19 [Unknown]
  - Influenza [Unknown]
  - Hordeolum [Unknown]
  - Sinusitis [Unknown]
  - Nasopharyngitis [Unknown]
  - Rash [Unknown]
  - Eye irritation [Unknown]
  - Drug effective for unapproved indication [Unknown]
